FAERS Safety Report 20587596 (Version 2)
Quarter: 2022Q2

REPORT INFORMATION
  Report Type: Report from Study
  Country: BR (occurrence: BR)
  Receive Date: 20220314
  Receipt Date: 20220408
  Transmission Date: 20220721
  Serious: Yes (Life-Threatening, Hospitalization, Other)
  Sender: FDA-Public Use
  Company Number: BR-NOVARTISPH-NVSC2022BR058015

PATIENT
  Sex: Male

DRUGS (4)
  1. GLIVEC [Suspect]
     Active Substance: IMATINIB MESYLATE
     Indication: Product used for unknown indication
     Dosage: UNK (UNDER TREATMENT FOR 12 YEARS) (ABOUT 3-4 YEARS AGO)
     Route: 065
  2. TASIGNA [Suspect]
     Active Substance: NILOTINIB
     Indication: Product used for unknown indication
     Dosage: 2 DOSAGE FORM (2 TABLET OF 200 MG) (12H ONE UN THE MORNING AND ONE AT NIGHT)
     Route: 065
  3. TASIGNA [Suspect]
     Active Substance: NILOTINIB
     Dosage: 2 TABLETS OF 200 MG (12-
     Route: 065
  4. DASATINIB [Concomitant]
     Active Substance: DASATINIB
     Indication: Product used for unknown indication
     Dosage: UNK
     Route: 065

REACTIONS (11)
  - Laryngeal oedema [Recovered/Resolved]
  - Dyspnoea [Unknown]
  - Pleural effusion [Unknown]
  - Pulmonary haemorrhage [Unknown]
  - Nausea [Unknown]
  - Hypersensitivity [Unknown]
  - Pharyngeal swelling [Recovered/Resolved]
  - Swelling [Recovered/Resolved]
  - Swelling face [Recovered/Resolved]
  - Swollen tongue [Unknown]
  - Lip swelling [Unknown]
